FAERS Safety Report 21651372 (Version 1)
Quarter: 2022Q4

REPORT INFORMATION
  Report Type: Spontaneous
  Country: US (occurrence: None)
  Receive Date: 20221127
  Receipt Date: 20221127
  Transmission Date: 20230113
  Serious: Yes (Disabling, Other)
  Sender: FDA-Public Use
  Company Number: None

PATIENT
  Age: 35 Month
  Sex: Male
  Weight: 15.75 kg

DRUGS (1)
  1. AMOXICILLIN [Suspect]
     Active Substance: AMOXICILLIN
     Indication: Sinusitis
     Dosage: OTHER QUANTITY : 7.5 ML;?FREQUENCY : TWICE A DAY;?
     Route: 048
     Dates: start: 20221116, end: 20221124

REACTIONS (1)
  - Serum sickness-like reaction [None]

NARRATIVE: CASE EVENT DATE: 20221124
